FAERS Safety Report 6571815-9 (Version None)
Quarter: 2010Q1

REPORT INFORMATION
  Report Type: 
  Country: None (occurrence: None)
  Receive Date: 20100205
  Receipt Date: 20100127
  Transmission Date: 20100710
  Serious: Yes (Hospitalization)
  Sender: FDA-Public Use
  Company Number: US-JNJFOC-20100111730

PATIENT
  Sex: Female
  Weight: 45 kg

DRUGS (5)
  1. INFLIXIMAB [Suspect]
     Indication: INFLAMMATION
  2. INFLIXIMAB [Suspect]
  3. 5-ASA [Concomitant]
  4. METHOTREXATE [Concomitant]
  5. PREDNISONE [Concomitant]

REACTIONS (1)
  - CROHN'S DISEASE [None]
